FAERS Safety Report 24058569 (Version 1)
Quarter: 2024Q3

REPORT INFORMATION
  Report Type: Spontaneous
  Country: EC (occurrence: EC)
  Receive Date: 20240708
  Receipt Date: 20240708
  Transmission Date: 20241016
  Serious: Yes (Other)
  Sender: ROCHE
  Company Number: EC-ROCHE-10000018163

PATIENT

DRUGS (1)
  1. AVASTIN [Suspect]
     Active Substance: BEVACIZUMAB
     Indication: Retinopathy
     Dosage: DOSE AND FREQUENCY WERE NOT REPORTED
     Route: 050
     Dates: start: 20240518

REACTIONS (1)
  - Endophthalmitis [Not Recovered/Not Resolved]
